FAERS Safety Report 18146408 (Version 1)
Quarter: 2020Q3

REPORT INFORMATION
  Report Type: Report from Study
  Country: JP (occurrence: JP)
  Receive Date: 20200813
  Receipt Date: 20200813
  Transmission Date: 20201103
  Serious: Yes (Hospitalization, Other)
  Sender: FDA-Public Use
  Company Number: JP-INCYTE CORPORATION-2018IN006032

PATIENT

DRUGS (12)
  1. JAKAVI [Suspect]
     Active Substance: RUXOLITINIB
     Dosage: 5 MG, BID
     Route: 048
     Dates: start: 20190730
  2. JAKAVI [Suspect]
     Active Substance: RUXOLITINIB
     Dosage: 15 MG (IN TWO DIVIDED DOSES), BID
     Route: 048
     Dates: start: 20181211, end: 20190729
  3. JAKAVI [Suspect]
     Active Substance: RUXOLITINIB
     Dosage: 7.8 MG
     Route: 048
     Dates: start: 20180130, end: 20181210
  4. FERROUS CITRATE NA [Concomitant]
     Active Substance: SODIUM FERROUS CITRATE
     Indication: MYELOFIBROSIS
     Dosage: 50 MG, QD
     Route: 048
     Dates: start: 20170725, end: 20170822
  5. JAKAVI [Suspect]
     Active Substance: RUXOLITINIB
     Indication: MYELOFIBROSIS
     Dosage: 10 MG, BID
     Route: 048
     Dates: start: 20160808, end: 20160814
  6. ALKERAN [Concomitant]
     Active Substance: MELPHALAN
     Indication: MYELOFIBROSIS
     Dosage: 8 MG, QD
     Route: 048
     Dates: end: 20160810
  7. LEVOFLOXACIN HEMIHYDRATE [Concomitant]
     Active Substance: LEVOFLOXACIN
     Indication: PROPHYLAXIS
     Dosage: 500 MG, QD
     Route: 048
     Dates: start: 20160812, end: 20170328
  8. JAKAVI [Suspect]
     Active Substance: RUXOLITINIB
     Dosage: 5 MG, QD
     Route: 048
     Dates: start: 20160820, end: 20160825
  9. JAKAVI [Suspect]
     Active Substance: RUXOLITINIB
     Dosage: 5 MG, BID
     Route: 048
     Dates: start: 20170414, end: 20170429
  10. JAKAVI [Suspect]
     Active Substance: RUXOLITINIB
     Dosage: 5 MG, BID
     Route: 048
     Dates: start: 20160815, end: 20160819
  11. JAKAVI [Suspect]
     Active Substance: RUXOLITINIB
     Dosage: 5 MG, QD
     Route: 048
     Dates: start: 20160913, end: 20170413
  12. JAKAVI [Suspect]
     Active Substance: RUXOLITINIB
     Dosage: 5 MG, BID
     Route: 048
     Dates: start: 20170517, end: 20180129

REACTIONS (6)
  - Diverticulum intestinal haemorrhagic [Recovered/Resolved]
  - Myelofibrosis [Recovering/Resolving]
  - Platelet count increased [Recovering/Resolving]
  - Anaemia [Not Recovered/Not Resolved]
  - Urinary tract infection [Recovered/Resolved]
  - Liver function test increased [Recovered/Resolved]

NARRATIVE: CASE EVENT DATE: 20160815
